FAERS Safety Report 13744729 (Version 1)
Quarter: 2017Q3

REPORT INFORMATION
  Report Type: Report from Study
  Country: None (occurrence: US)
  Receive Date: 20170712
  Receipt Date: 20170712
  Transmission Date: 20171127
  Serious: No
  Sender: FDA-Public Use
  Company Number: US-IPSEN BIOPHARMACEUTICALS, INC.-2012-7811

PATIENT
  Sex: Male

DRUGS (8)
  1. UNSPECIFIED STEROIDS [Suspect]
     Active Substance: UNSPECIFIED INGREDIENT
     Indication: URTICARIA
     Dosage: NOT REPORTED
     Route: 065
     Dates: start: 20121011, end: 20121011
  2. SOMAVERT [Concomitant]
     Active Substance: PEGVISOMANT
     Indication: PRODUCT USED FOR UNKNOWN INDICATION
     Dosage: NOT REPORTED
     Route: 065
     Dates: start: 20121011, end: 20121011
  3. ANTIHISTAMINES [Concomitant]
     Active Substance: ANTIHISTAMINES NOS
     Indication: HYPOTENSION
  4. ANTIHISTAMINES [Concomitant]
     Active Substance: ANTIHISTAMINES NOS
     Indication: URTICARIA
     Dosage: NOT REPORTED
     Route: 065
     Dates: start: 20121011, end: 20121011
  5. UNSPECIFIED STEROIDS [Suspect]
     Active Substance: UNSPECIFIED INGREDIENT
     Indication: HYPOTENSION
  6. SOMATULINE DEPOT [Suspect]
     Active Substance: LANREOTIDE ACETATE
     Indication: ACROMEGALY
     Dosage: 60 MG
     Route: 058
     Dates: start: 20121102
  7. UNSPECIFIED STEROIDS [Suspect]
     Active Substance: UNSPECIFIED INGREDIENT
     Indication: DYSPNOEA
  8. ANTIHISTAMINES [Concomitant]
     Active Substance: ANTIHISTAMINES NOS
     Indication: DYSPNOEA

REACTIONS (1)
  - Blood glucose increased [None]
